FAERS Safety Report 9315719 (Version 1)
Quarter: 2013Q2

REPORT INFORMATION
  Report Type: Spontaneous
  Country: NL (occurrence: NL)
  Receive Date: 20130529
  Receipt Date: 20130529
  Transmission Date: 20140414
  Serious: Yes (Other)
  Sender: FDA-Public Use
  Company Number: PHHY2013NL053304

PATIENT
  Sex: Male

DRUGS (1)
  1. TAMSULOSIN [Suspect]
     Dosage: 1 DF, UNK

REACTIONS (3)
  - Movement disorder [Recovered/Resolved]
  - Orthostatic hypotension [Recovered/Resolved]
  - Dry mouth [Recovered/Resolved]
